FAERS Safety Report 7071392-2 (Version None)
Quarter: 2010Q4

REPORT INFORMATION
  Report Type: 
  Country: None (occurrence: None)
  Receive Date: 20101029
  Receipt Date: 20100105
  Transmission Date: 20110411
  Serious: No
  Sender: FDA-Public Use
  Company Number: A0736054A

PATIENT
  Sex: Female

DRUGS (8)
  1. ADVAIR DISKUS 100/50 [Suspect]
     Indication: ASTHMA
     Dosage: 1PUFF TWICE PER DAY
     Route: 055
  2. ADVAIR DISKUS 100/50 [Suspect]
     Dosage: 1PUFF TWICE PER DAY
     Route: 055
     Dates: start: 20060101, end: 20080701
  3. THYROID MEDICATION [Concomitant]
  4. VITAMIN TAB [Concomitant]
  5. UNKNOWN MEDICATION [Concomitant]
  6. ALBUTEROL [Concomitant]
  7. BENICAL [Concomitant]
  8. SIMVASTATIN [Concomitant]

REACTIONS (3)
  - DYSPHONIA [None]
  - ORAL PAIN [None]
  - THERAPEUTIC RESPONSE DECREASED [None]
